FAERS Safety Report 13288974 (Version 2)
Quarter: 2017Q1

REPORT INFORMATION
  Report Type: Spontaneous
  Country: EG (occurrence: EG)
  Receive Date: 20170302
  Receipt Date: 20170308
  Transmission Date: 20170428
  Serious: Yes (Other)
  Sender: FDA-Public Use
  Company Number: EG-009507513-1702EGY012359

PATIENT
  Age: 76 Year
  Sex: Male

DRUGS (2)
  1. KEYTRUDA [Suspect]
     Active Substance: PEMBROLIZUMAB
     Dosage: 2MG/KG, Q3W, EVERY 21 DAYS
     Dates: start: 20161214
  2. KEYTRUDA [Suspect]
     Active Substance: PEMBROLIZUMAB
     Dosage: 2MG/KG, Q3W, EVERY 21 DAYS
     Dates: start: 20170222

REACTIONS (2)
  - Kidney transplant rejection [Unknown]
  - Altered state of consciousness [Unknown]

NARRATIVE: CASE EVENT DATE: 20170228
